FAERS Safety Report 15146642 (Version 1)
Quarter: 2018Q3

REPORT INFORMATION
  Report Type: Spontaneous
  Country: US (occurrence: US)
  Receive Date: 20180715
  Receipt Date: 20180715
  Transmission Date: 20181010
  Serious: Yes (Death)
  Sender: FDA-Public Use
  Company Number: US-BEH-2018092662

PATIENT
  Age: 89 Year
  Sex: Female
  Weight: 40.82 kg

DRUGS (27)
  1. ZEMAIRA [Suspect]
     Active Substance: .ALPHA.1-PROTEINASE INHIBITOR HUMAN
     Dosage: UNK
     Route: 042
  2. BENICAR [Concomitant]
     Active Substance: OLMESARTAN MEDOXOMIL
  3. DIPHENHYDRAMINE. [Concomitant]
     Active Substance: DIPHENHYDRAMINE
  4. OXYGEN. [Concomitant]
     Active Substance: OXYGEN
  5. HYDROCODONE BITARTRATE AND ACETAMINOPHEN [Concomitant]
     Active Substance: ACETAMINOPHEN\HYDROCODONE BITARTRATE
  6. MIRTAZAPINE. [Concomitant]
     Active Substance: MIRTAZAPINE
  7. KLOR?CON [Concomitant]
     Active Substance: POTASSIUM CHLORIDE
  8. SYSTANE (HYPROMELLOSE 2910 (4000 MPA.S)) [Concomitant]
     Active Substance: HYPROMELLOSE 2910 (4000 MPA.S)
  9. NEXIUM [Concomitant]
     Active Substance: ESOMEPRAZOLE MAGNESIUM
  10. ZEMAIRA [Suspect]
     Active Substance: .ALPHA.1-PROTEINASE INHIBITOR HUMAN
     Indication: ALPHA-1 ANTI-TRYPSIN DEFICIENCY
     Dosage: 120 MG/KG, UNK
     Route: 042
     Dates: start: 20131212, end: 20180615
  11. MELOXICAM. [Concomitant]
     Active Substance: MELOXICAM
  12. COMBIGAN [Concomitant]
     Active Substance: BRIMONIDINE TARTRATE\TIMOLOL MALEATE
  13. VITAMIN D3 [Concomitant]
     Active Substance: CHOLECALCIFEROL
  14. LEVOTHYROXINE. [Concomitant]
     Active Substance: LEVOTHYROXINE
  15. ASPIRIN. [Concomitant]
     Active Substance: ASPIRIN
  16. DILTIAZEM. [Concomitant]
     Active Substance: DILTIAZEM
  17. SODIUM CHLORIDE. [Concomitant]
     Active Substance: SODIUM CHLORIDE
  18. FUROSEMIDE. [Concomitant]
     Active Substance: FUROSEMIDE
  19. TRAVATAN Z [Concomitant]
     Active Substance: TRAVOPROST
  20. METOCLOPRAMIDE. [Concomitant]
     Active Substance: METOCLOPRAMIDE
  21. NORMAL SALINE [Concomitant]
     Active Substance: SODIUM CHLORIDE
  22. ADVAIR HFA [Concomitant]
     Active Substance: FLUTICASONE PROPIONATE\SALMETEROL XINAFOATE
  23. PREMARIN [Concomitant]
     Active Substance: ESTROGENS, CONJUGATED
  24. DOCUSATE [Concomitant]
     Active Substance: DOCUSATE
  25. EPINEPHRINE. [Concomitant]
     Active Substance: EPINEPHRINE
  26. ALPRAZOLAM. [Concomitant]
     Active Substance: ALPRAZOLAM
  27. COMBIVENT [Concomitant]
     Active Substance: ALBUTEROL SULFATE\IPRATROPIUM BROMIDE

REACTIONS (1)
  - Death [Fatal]

NARRATIVE: CASE EVENT DATE: 20180615
